FAERS Safety Report 17863311 (Version 2)
Quarter: 2020Q2

REPORT INFORMATION
  Report Type: Spontaneous
  Country: CA (occurrence: CA)
  Receive Date: 20200605
  Receipt Date: 20200619
  Transmission Date: 20200714
  Serious: Yes (Hospitalization, Other)
  Sender: FDA-Public Use
  Company Number: CA-ROCHE-2564579

PATIENT
  Age: 63 Year
  Sex: Male

DRUGS (1)
  1. XOLAIR [Suspect]
     Active Substance: OMALIZUMAB
     Indication: ASTHMA
     Route: 058
     Dates: start: 20131205

REACTIONS (4)
  - Sepsis [Unknown]
  - Ill-defined disorder [Unknown]
  - Prostate cancer stage II [Unknown]
  - Prostate infection [Unknown]

NARRATIVE: CASE EVENT DATE: 20200527
